FAERS Safety Report 4897535-4 (Version None)
Quarter: 2006Q1

REPORT INFORMATION
  Report Type: 
  Country: None (occurrence: None)
  Receive Date: 20060130
  Receipt Date: 20060130
  Transmission Date: 20060701
  Serious: No
  Sender: FDA-Public Use
  Company Number: None

PATIENT
  Age: 43 Year
  Sex: Male
  Weight: 86.1834 kg

DRUGS (1)
  1. ANCEF [Suspect]
     Dosage: GM ONE SINGLE DOSE IV
     Route: 042
     Dates: start: 20060125

REACTIONS (6)
  - DYSPNOEA [None]
  - HYPERHIDROSIS [None]
  - INFUSION RELATED REACTION [None]
  - PREOPERATIVE CARE [None]
  - TACHYCARDIA [None]
  - WHEEZING [None]
